FAERS Safety Report 18983162 (Version 7)
Quarter: 2025Q3

REPORT INFORMATION
  Report Type: Spontaneous
  Country: CA (occurrence: CA)
  Receive Date: 20210308
  Receipt Date: 20250809
  Transmission Date: 20251020
  Serious: Yes (Life-Threatening, Hospitalization, Other)
  Sender: ALEXION PHARMACEUTICALS
  Company Number: 2021A099042

PATIENT
  Age: 76 Year
  Sex: Female

DRUGS (8)
  1. ROSUVASTATIN [Suspect]
     Active Substance: ROSUVASTATIN
     Dosage: 40 MILLIGRAM, QD
  2. CANAGLIFLOZIN [Suspect]
     Active Substance: CANAGLIFLOZIN
     Dosage: 100 MILLIGRAM, QD
     Route: 065
  3. INVOKANA [Suspect]
     Active Substance: CANAGLIFLOZIN
     Indication: Type 2 diabetes mellitus
     Dosage: 100 MILLIGRAM, QD
     Route: 065
  4. ASPIRIN [Concomitant]
     Active Substance: ASPIRIN
     Indication: Product used for unknown indication
     Dosage: 81 MILLIGRAM, QD
     Route: 065
  5. Mylan bisoprolol [Concomitant]
     Indication: Product used for unknown indication
     Dosage: 1.25 MILLIGRAM, QD
     Route: 065
  6. LEVOTHYROXINE [Concomitant]
     Active Substance: LEVOTHYROXINE
     Dosage: .05 MILLIGRAM, QD
     Route: 065
  7. METFORMIN [Concomitant]
     Active Substance: METFORMIN HYDROCHLORIDE
     Indication: Product used for unknown indication
     Dosage: 500 MILLIGRAM, QD
     Route: 065
  8. RISEDRONATE SODIUM [Concomitant]
     Active Substance: RISEDRONATE SODIUM
     Dosage: 35 MILLIGRAM, QW
     Route: 065

REACTIONS (13)
  - Drug interaction [Recovered/Resolved]
  - Drug level above therapeutic [Unknown]
  - Drug level increased [Unknown]
  - Drug-induced liver injury [Unknown]
  - Gait disturbance [Unknown]
  - Hepatocellular injury [Recovering/Resolving]
  - Laboratory test abnormal [Unknown]
  - Muscle disorder [Recovering/Resolving]
  - Musculoskeletal toxicity [Recovering/Resolving]
  - Myopathy toxic [Recovered/Resolved]
  - Rhabdomyolysis [Recovering/Resolving]
  - Toxicity to various agents [Recovering/Resolving]
  - Drug-induced liver injury [Recovering/Resolving]
